FAERS Safety Report 10378912 (Version 1)
Quarter: 2014Q3

REPORT INFORMATION
  Report Type: Spontaneous
  Country: US (occurrence: None)
  Receive Date: 20140811
  Receipt Date: 20140811
  Transmission Date: 20150326
  Serious: Yes (Other)
  Sender: FDA-Public Use
  Company Number: None

PATIENT
  Age: 39 Year
  Sex: Female
  Weight: 50 kg

DRUGS (1)
  1. BENADRYL [Suspect]
     Active Substance: DIPHENHYDRAMINE HYDROCHLORIDE
     Route: 042
     Dates: start: 20140808

REACTIONS (7)
  - Convulsion [None]
  - Dyspnoea [None]
  - Tremor [None]
  - Palpitations [None]
  - Incorrect drug administration rate [None]
  - Syncope [None]
  - Chest discomfort [None]

NARRATIVE: CASE EVENT DATE: 20140808
